FAERS Safety Report 21714618 (Version 1)
Quarter: 2022Q4

REPORT INFORMATION
  Report Type: Spontaneous
  Country: US (occurrence: US)
  Receive Date: 20221212
  Receipt Date: 20221212
  Transmission Date: 20230113
  Serious: Yes (Other)
  Sender: FDA-Public Use
  Company Number: US-MEDEXUS PHARMA, INC.-2022MED00461

PATIENT
  Age: 68 Year
  Sex: Male

DRUGS (2)
  1. METHOTREXATE [Suspect]
     Active Substance: METHOTREXATE
     Indication: Burkitt^s lymphoma
     Dosage: HIGH DOSE INFUSION
     Route: 042
  2. STANDARD CHEMOTHERAPY UNSPECIFIED [Concomitant]
     Indication: Chemotherapy
     Route: 065

REACTIONS (2)
  - Nephrogenic diabetes insipidus [Recovered/Resolved]
  - Immunosuppressant drug level increased [Recovered/Resolved]
